FAERS Safety Report 18336420 (Version 1)
Quarter: 2020Q4

REPORT INFORMATION
  Report Type: Spontaneous
  Country: US (occurrence: US)
  Receive Date: 20201001
  Receipt Date: 20201001
  Transmission Date: 20210113
  Serious: No
  Sender: FDA-Public Use
  Company Number: US-009507513-2009USA010084

PATIENT
  Age: 32 Year
  Sex: Female

DRUGS (1)
  1. NEXPLANON [Suspect]
     Active Substance: ETONOGESTREL
     Indication: CONTRACEPTION
     Dosage: 1 DOSAGE FORM (ROD), ARM
     Route: 059
     Dates: start: 20200825, end: 202009

REACTIONS (6)
  - Implant site induration [Unknown]
  - Complication associated with device [Recovered/Resolved]
  - Implant site discharge [Unknown]
  - Implant site infection [Recovered/Resolved]
  - Implant site erythema [Unknown]
  - Implant site inflammation [Unknown]

NARRATIVE: CASE EVENT DATE: 202009
